FAERS Safety Report 21936106 (Version 1)
Quarter: 2023Q1

REPORT INFORMATION
  Report Type: Spontaneous
  Country: US (occurrence: None)
  Receive Date: 20230131
  Receipt Date: 20230131
  Transmission Date: 20230418
  Serious: No
  Sender: FDA-Public Use
  Company Number: None

PATIENT
  Sex: Female

DRUGS (1)
  1. BENLYSTA [Suspect]
     Active Substance: BELIMUMAB
     Dosage: FREQUENCY : WEEKLY;?
     Route: 058
     Dates: start: 202109

REACTIONS (3)
  - Device defective [None]
  - Product leakage [None]
  - Drug dose omission by device [None]
